FAERS Safety Report 8577370-6 (Version None)
Quarter: 2012Q3

REPORT INFORMATION
  Report Type: 
  Country: None (occurrence: None)
  Receive Date: 20120807
  Receipt Date: 20120730
  Transmission Date: 20120928
  Serious: Yes (Other)
  Sender: FDA-Public Use
  Company Number: JP-VERTEX PHARMACEUTICALS INC.-AE-2012-007087

PATIENT
  Age: 56 Year
  Sex: Female

DRUGS (15)
  1. TELAVIC [Suspect]
     Indication: HEPATITIS C
     Route: 048
     Dates: start: 20120327, end: 20120618
  2. PEG-INTRON [Concomitant]
     Route: 058
     Dates: start: 20120403, end: 20120403
  3. PEG-INTRON [Concomitant]
     Route: 058
     Dates: start: 20120508
  4. PEG-INTRON [Concomitant]
     Route: 058
     Dates: start: 20120619
  5. PEG-INTRON [Concomitant]
     Indication: HEPATITIS C
     Route: 058
     Dates: start: 20120327, end: 20120327
  6. PEG-INTRON [Concomitant]
     Route: 058
     Dates: start: 20120424
  7. PEG-INTRON [Concomitant]
     Route: 058
     Dates: start: 20120409, end: 20120409
  8. PEG-INTRON [Concomitant]
     Route: 058
     Dates: start: 20120417, end: 20120417
  9. PEG-INTRON [Concomitant]
     Route: 058
     Dates: start: 20120522, end: 20120612
  10. RIBAVIRIN [Concomitant]
     Route: 048
     Dates: start: 20120424
  11. PEG-INTRON [Concomitant]
     Route: 058
     Dates: start: 20120501
  12. RIBAVIRIN [Concomitant]
     Indication: HEPATITIS C
     Route: 048
     Dates: start: 20120327, end: 20120423
  13. PEG-INTRON [Concomitant]
     Route: 058
     Dates: end: 20120515
  14. CLOBETASOL PROPIONATE [Concomitant]
     Route: 061
     Dates: start: 20120329, end: 20120329
  15. CLOBETASOL PROPIONATE [Concomitant]
     Route: 061

REACTIONS (1)
  - NEUTROPHIL COUNT DECREASED [None]
